FAERS Safety Report 19352860 (Version 1)
Quarter: 2021Q2

REPORT INFORMATION
  Report Type: Spontaneous
  Country: US (occurrence: US)
  Receive Date: 20210601
  Receipt Date: 20210601
  Transmission Date: 20210717
  Serious: Yes (Other)
  Sender: FDA-Public Use
  Company Number: US-GW PHARMA-202105USGW02587

PATIENT

DRUGS (3)
  1. VIGABATRIN. [Concomitant]
     Active Substance: VIGABATRIN
     Indication: SEIZURE
     Dosage: MIX 2 PACKETS IN 20 ML OF WATER + GIVE 15 ML IN THE MORNING. MIX 2 PACKETS IN 20 ML OF WATER + GIVE
     Route: 065
     Dates: start: 201908
  2. GLYCOPYRROLATE. [Suspect]
     Active Substance: GLYCOPYRROLATE
     Indication: PRODUCT USED FOR UNKNOWN INDICATION
     Dosage: UNK
     Route: 065
  3. EPIDIOLEX [Suspect]
     Active Substance: CANNABIDIOL
     Indication: SEIZURE
     Dosage: 200 MILLIGRAM
     Route: 048
     Dates: start: 201907

REACTIONS (1)
  - Drug hypersensitivity [Unknown]
